FAERS Safety Report 8120914-9 (Version None)
Quarter: 2012Q1

REPORT INFORMATION
  Report Type: 
  Country: None (occurrence: None)
  Receive Date: 20120208
  Receipt Date: 20120131
  Transmission Date: 20120608
  Serious: Yes (Other)
  Sender: FDA-Public Use
  Company Number: US-ELI_LILLY_AND_COMPANY-US201111004613

PATIENT
  Age: 69 Year
  Sex: Male
  Weight: 63.9 kg

DRUGS (9)
  1. CYMBALTA [Suspect]
     Indication: MAJOR DEPRESSION
     Dosage: UNK
     Dates: start: 20101001
  2. ADDERALL 5 [Concomitant]
  3. STRATTERA [Suspect]
     Indication: ATTENTION DEFICIT/HYPERACTIVITY DISORDER
     Dosage: 80 MG, QD
     Route: 048
     Dates: start: 20110101, end: 20110501
  4. CYMBALTA [Suspect]
     Dosage: 60 MG, QD
     Route: 048
     Dates: start: 20110801
  5. TESTOSTERONE [Concomitant]
     Dosage: 75 MG, MONTHLY (1/M)
  6. GABAPENTIN [Concomitant]
     Indication: DIABETIC NEUROPATHY
     Dosage: 100 MG, TID
  7. CYMBALTA [Suspect]
     Dosage: 90 MG, QD
     Route: 048
     Dates: start: 20101101, end: 20110501
  8. DRUG USED IN DIABETES [Concomitant]
     Indication: DIABETES MELLITUS
  9. OXYCODONE HCL [Concomitant]

REACTIONS (4)
  - CEREBROVASCULAR ACCIDENT [None]
  - ALTERED STATE OF CONSCIOUSNESS [None]
  - VASCULAR DEMENTIA [None]
  - CONVULSION [None]
